FAERS Safety Report 25990062 (Version 1)
Quarter: 2025Q4

REPORT INFORMATION
  Report Type: Other
  Country: IN (occurrence: IN)
  Receive Date: 20251103
  Receipt Date: 20251103
  Transmission Date: 20260118
  Serious: Yes (Other)
  Sender: APPCO PHARMA LLC
  Company Number: IN-Appco Pharma LLC-2187776

PATIENT
  Age: 71 Year
  Sex: Female

DRUGS (1)
  1. NITROFURANTOIN [Suspect]
     Active Substance: NITROFURANTOIN
     Indication: Urinary tract infection

REACTIONS (1)
  - Interstitial lung disease [Recovered/Resolved]
